FAERS Safety Report 16841467 (Version 1)
Quarter: 2019Q3

REPORT INFORMATION
  Report Type: Spontaneous
  Country: SK (occurrence: SK)
  Receive Date: 20190923
  Receipt Date: 20190923
  Transmission Date: 20191005
  Serious: Yes (Death, Hospitalization, Other)
  Sender: FDA-Public Use
  Company Number: SK-SHIRE-SK201930529

PATIENT

DRUGS (1)
  1. HYQVIA [Suspect]
     Active Substance: HUMAN IMMUNOGLOBULIN G\HYALURONIDASE RECOMBINANT HUMAN
     Indication: PLASMA CELL MYELOMA
     Dosage: 15 G/150 ML, 1X A MONTH
     Route: 065
     Dates: start: 20170925

REACTIONS (4)
  - Abdominal pain [Unknown]
  - Death [Fatal]
  - Pelvic pain [Unknown]
  - Intentional product use issue [Unknown]

NARRATIVE: CASE EVENT DATE: 20190913
